FAERS Safety Report 10717449 (Version 1)
Quarter: 2015Q1

REPORT INFORMATION
  Report Type: Spontaneous
  Country: US (occurrence: US)
  Receive Date: 20150116
  Receipt Date: 20150116
  Transmission Date: 20150721
  Serious: Yes (Other)
  Sender: FDA-Public Use
  Company Number: US-PFIZER INC-2015015277

PATIENT
  Sex: Male

DRUGS (1)
  1. GEODON [Suspect]
     Active Substance: ZIPRASIDONE HYDROCHLORIDE\ZIPRASIDONE MESYLATE
     Dosage: 100 MG TOTAL, DAILY (MORE THAN ONCE A DAY)
     Dates: start: 2012

REACTIONS (2)
  - Electrocardiogram QRS complex abnormal [Unknown]
  - Bundle branch block right [Unknown]
